FAERS Safety Report 5174073-5 (Version None)
Quarter: 2006Q4

REPORT INFORMATION
  Report Type: 
  Country: None (occurrence: None)
  Receive Date: 20061214
  Receipt Date: 20060206
  Transmission Date: 20070319
  Serious: No
  Sender: FDA-Public Use
  Company Number: US-AMGEN-US167662

PATIENT
  Sex: Female
  Weight: 79.5 kg

DRUGS (3)
  1. ENBREL [Suspect]
     Indication: RHEUMATOID ARTHRITIS
     Route: 065
     Dates: start: 20060124, end: 20060202
  2. PREDNISONE TAB [Concomitant]
     Route: 065
  3. IBUPROFEN [Concomitant]
     Route: 065

REACTIONS (3)
  - INJECTION SITE ERYTHEMA [None]
  - INJECTION SITE PRURITUS [None]
  - INJECTION SITE REACTION [None]
